FAERS Safety Report 9879881 (Version 1)
Quarter: 2014Q1

REPORT INFORMATION
  Report Type: Spontaneous
  Country: US (occurrence: US)
  Receive Date: 20140206
  Receipt Date: 20140206
  Transmission Date: 20141002
  Serious: No
  Sender: FDA-Public Use
  Company Number: US-009507513-1402USA002266

PATIENT
  Sex: Female

DRUGS (12)
  1. MONTELUKAST SODIUM [Suspect]
     Indication: ASTHMA
     Dosage: UNK
     Route: 048
     Dates: start: 201202
  2. PRILOSEC [Concomitant]
     Dosage: 20 MG TWICE PER DAY
     Route: 048
  3. LEVOTHYROXINE SODIUM [Concomitant]
     Dosage: 50 MCG DAILY
     Route: 048
  4. ALPRAZOLAM [Concomitant]
     Dosage: 1 MG, THREE TIMES PER DAY
  5. ZOCOR [Concomitant]
     Dosage: 10 MG DAILY
     Route: 048
  6. ALLOPURINOL [Concomitant]
     Dosage: 100 MG DAILY
  7. VITAMIN D (UNSPECIFIED) [Concomitant]
     Dosage: 50000 IU ONCE PER WEEK
  8. RAMIPRIL [Concomitant]
     Dosage: 10 MG TWICE PER DAY
  9. CALCITROL [Concomitant]
     Dosage: 0.25 MCG DAILY
  10. PROCRIT [Concomitant]
  11. AMLODIPINE [Concomitant]
     Dosage: 10 MG DAILY
  12. OXYGEN [Concomitant]

REACTIONS (2)
  - Generalised erythema [Unknown]
  - Pruritus generalised [Unknown]
